FAERS Safety Report 5335063-2 (Version None)
Quarter: 2007Q2

REPORT INFORMATION
  Report Type: 
  Country: None (occurrence: None)
  Receive Date: 20070525
  Receipt Date: 20070524
  Transmission Date: 20071010
  Serious: Yes (Other)
  Sender: FDA-Public Use
  Company Number: US-BRISTOL-MYERS SQUIBB COMPANY-13778154

PATIENT
  Sex: Female

DRUGS (2)
  1. BUSPAR [Suspect]
  2. TRAZODONE HCL [Suspect]
     Dates: start: 20041201

REACTIONS (2)
  - ACUTE RESPIRATORY FAILURE [None]
  - CHOKING [None]
